FAERS Safety Report 21990477 (Version 2)
Quarter: 2023Q2

REPORT INFORMATION
  Report Type: Spontaneous
  Country: JP (occurrence: JP)
  Receive Date: 20230214
  Receipt Date: 20230518
  Transmission Date: 20230722
  Serious: Yes (Death, Other)
  Sender: FDA-Public Use
  Company Number: JP-JAZZ-2023-JP-003452

PATIENT
  Age: 65 Year
  Sex: Male
  Weight: 55.5 kg

DRUGS (1)
  1. DEFITELIO [Suspect]
     Active Substance: DEFIBROTIDE SODIUM
     Indication: Venoocclusive liver disease
     Dosage: 25 MILLIGRAM/KILOGRAM, QD
     Route: 042
     Dates: start: 20220901, end: 20220915

REACTIONS (2)
  - Acute myeloid leukaemia [Fatal]
  - Pneumonia [Unknown]
